FAERS Safety Report 19083150 (Version 2)
Quarter: 2021Q3

REPORT INFORMATION
  Report Type: Report from Study
  Country: JP (occurrence: JP)
  Receive Date: 20210401
  Receipt Date: 20210926
  Transmission Date: 20211014
  Serious: Yes (Hospitalization, Other)
  Sender: FDA-Public Use
  Company Number: JP-JNJFOC-20190114271

PATIENT
  Age: 64 Year
  Sex: Male
  Weight: 75.3 kg

DRUGS (90)
  1. DARZALEX [Suspect]
     Active Substance: DARATUMUMAB
     Route: 041
     Dates: start: 20180622, end: 20180622
  2. DARZALEX [Suspect]
     Active Substance: DARATUMUMAB
     Route: 041
     Dates: start: 20180713, end: 20180713
  3. VELCADE [Suspect]
     Active Substance: BORTEZOMIB
     Indication: PLASMA CELL MYELOMA
     Route: 065
     Dates: start: 20180209, end: 20180209
  4. VELCADE [Suspect]
     Active Substance: BORTEZOMIB
     Indication: PLASMA CELL MYELOMA
     Route: 065
     Dates: start: 20180326, end: 20180326
  5. VELCADE [Suspect]
     Active Substance: BORTEZOMIB
     Indication: PLASMA CELL MYELOMA
     Route: 065
     Dates: start: 20180413, end: 20180413
  6. VELCADE [Suspect]
     Active Substance: BORTEZOMIB
     Indication: PLASMA CELL MYELOMA
     Route: 065
     Dates: start: 20180601, end: 20180601
  7. VELCADE [Suspect]
     Active Substance: BORTEZOMIB
     Indication: PLASMA CELL MYELOMA
     Route: 065
     Dates: start: 20180611, end: 20180611
  8. VELCADE [Suspect]
     Active Substance: BORTEZOMIB
     Indication: PLASMA CELL MYELOMA
     Route: 065
     Dates: start: 20180806, end: 20180806
  9. VELCADE [Suspect]
     Active Substance: BORTEZOMIB
     Indication: PLASMA CELL MYELOMA
     Route: 065
     Dates: start: 20180810, end: 20180810
  10. DEXART [Suspect]
     Active Substance: DEXAMETHASONE SODIUM PHOSPHATE
     Indication: PLASMA CELL MYELOMA
     Route: 065
     Dates: start: 20180201, end: 20180202
  11. DEXART [Suspect]
     Active Substance: DEXAMETHASONE SODIUM PHOSPHATE
     Indication: PLASMA CELL MYELOMA
     Route: 065
     Dates: start: 20180205, end: 20180206
  12. DEXART [Suspect]
     Active Substance: DEXAMETHASONE SODIUM PHOSPHATE
     Indication: PLASMA CELL MYELOMA
     Route: 065
     Dates: start: 20180604, end: 20180605
  13. DEXART [Suspect]
     Active Substance: DEXAMETHASONE SODIUM PHOSPHATE
     Indication: PLASMA CELL MYELOMA
     Route: 065
     Dates: start: 20180608, end: 20180609
  14. DEXART [Suspect]
     Active Substance: DEXAMETHASONE SODIUM PHOSPHATE
     Indication: PLASMA CELL MYELOMA
     Route: 065
     Dates: start: 20180625, end: 20180626
  15. DEXART [Suspect]
     Active Substance: DEXAMETHASONE SODIUM PHOSPHATE
     Indication: PLASMA CELL MYELOMA
     Route: 065
     Dates: start: 20180824, end: 20180824
  16. DARZALEX [Suspect]
     Active Substance: DARATUMUMAB
     Route: 041
     Dates: start: 20180209, end: 20180209
  17. VELCADE [Suspect]
     Active Substance: BORTEZOMIB
     Indication: PLASMA CELL MYELOMA
     Route: 065
     Dates: start: 20180216, end: 20180216
  18. VELCADE [Suspect]
     Active Substance: BORTEZOMIB
     Indication: PLASMA CELL MYELOMA
     Route: 065
     Dates: start: 20180223, end: 20180223
  19. VELCADE [Suspect]
     Active Substance: BORTEZOMIB
     Indication: PLASMA CELL MYELOMA
     Route: 065
     Dates: start: 20180803, end: 20180803
  20. DEXART [Suspect]
     Active Substance: DEXAMETHASONE SODIUM PHOSPHATE
     Indication: PLASMA CELL MYELOMA
     Route: 065
     Dates: start: 20180326, end: 20180327
  21. DEXART [Suspect]
     Active Substance: DEXAMETHASONE SODIUM PHOSPHATE
     Indication: PLASMA CELL MYELOMA
     Route: 065
     Dates: start: 20180413, end: 20180414
  22. DEXART [Suspect]
     Active Substance: DEXAMETHASONE SODIUM PHOSPHATE
     Indication: PLASMA CELL MYELOMA
     Route: 065
     Dates: start: 20180416, end: 20180417
  23. DEXART [Suspect]
     Active Substance: DEXAMETHASONE SODIUM PHOSPHATE
     Indication: PLASMA CELL MYELOMA
     Route: 065
     Dates: start: 20180717, end: 20180718
  24. DEXART [Suspect]
     Active Substance: DEXAMETHASONE SODIUM PHOSPHATE
     Indication: PLASMA CELL MYELOMA
     Route: 065
     Dates: start: 20180803, end: 20180804
  25. DARZALEX [Suspect]
     Active Substance: DARATUMUMAB
     Route: 041
     Dates: start: 20180316, end: 20180316
  26. DARZALEX [Suspect]
     Active Substance: DARATUMUMAB
     Route: 041
     Dates: start: 20180323, end: 20180323
  27. DARZALEX [Suspect]
     Active Substance: DARATUMUMAB
     Route: 041
     Dates: start: 20180330, end: 20180330
  28. DARZALEX [Suspect]
     Active Substance: DARATUMUMAB
     Route: 041
     Dates: start: 20180601, end: 20180601
  29. DARZALEX [Suspect]
     Active Substance: DARATUMUMAB
     Route: 041
     Dates: start: 20180920, end: 20180920
  30. VELCADE [Suspect]
     Active Substance: BORTEZOMIB
     Indication: PLASMA CELL MYELOMA
     Route: 065
     Dates: start: 20180604, end: 20180604
  31. VELCADE [Suspect]
     Active Substance: BORTEZOMIB
     Indication: PLASMA CELL MYELOMA
     Route: 065
     Dates: start: 20180625, end: 20180625
  32. VELCADE [Suspect]
     Active Substance: BORTEZOMIB
     Indication: PLASMA CELL MYELOMA
     Route: 065
     Dates: start: 20180813, end: 20180813
  33. DEXART [Suspect]
     Active Substance: DEXAMETHASONE SODIUM PHOSPHATE
     Indication: PLASMA CELL MYELOMA
     Route: 065
     Dates: start: 20180305, end: 20180306
  34. DEXART [Suspect]
     Active Substance: DEXAMETHASONE SODIUM PHOSPHATE
     Indication: PLASMA CELL MYELOMA
     Route: 065
     Dates: start: 20180629, end: 20180630
  35. DEXART [Suspect]
     Active Substance: DEXAMETHASONE SODIUM PHOSPHATE
     Indication: PLASMA CELL MYELOMA
     Route: 065
     Dates: start: 20190110, end: 20190110
  36. DARZALEX [Suspect]
     Active Substance: DARATUMUMAB
     Route: 041
     Dates: start: 20180302, end: 20180302
  37. VELCADE [Suspect]
     Active Substance: BORTEZOMIB
     Indication: PLASMA CELL MYELOMA
     Route: 065
     Dates: start: 20180205, end: 20180205
  38. VELCADE [Suspect]
     Active Substance: BORTEZOMIB
     Indication: PLASMA CELL MYELOMA
     Route: 065
     Dates: start: 20180212, end: 20180212
  39. VELCADE [Suspect]
     Active Substance: BORTEZOMIB
     Indication: PLASMA CELL MYELOMA
     Route: 065
     Dates: start: 20180302, end: 20180302
  40. VELCADE [Suspect]
     Active Substance: BORTEZOMIB
     Indication: PLASMA CELL MYELOMA
     Route: 065
     Dates: start: 20180720, end: 20180720
  41. DEXART [Suspect]
     Active Substance: DEXAMETHASONE SODIUM PHOSPHATE
     Indication: PLASMA CELL MYELOMA
     Route: 065
     Dates: start: 20180406, end: 20180406
  42. DEXART [Suspect]
     Active Substance: DEXAMETHASONE SODIUM PHOSPHATE
     Indication: PLASMA CELL MYELOMA
     Route: 065
     Dates: start: 20181115, end: 20181115
  43. INAVIR [Concomitant]
     Indication: INFLUENZA
     Dosage: 2KIT
     Route: 055
     Dates: start: 20180307, end: 20180307
  44. VELCADE [Suspect]
     Active Substance: BORTEZOMIB
     Indication: PLASMA CELL MYELOMA
     Route: 065
     Dates: start: 20180423, end: 20180423
  45. VELCADE [Suspect]
     Active Substance: BORTEZOMIB
     Indication: PLASMA CELL MYELOMA
     Route: 065
     Dates: start: 20180608, end: 20180608
  46. VELCADE [Suspect]
     Active Substance: BORTEZOMIB
     Indication: PLASMA CELL MYELOMA
     Route: 065
     Dates: start: 20180622, end: 20180622
  47. VELCADE [Suspect]
     Active Substance: BORTEZOMIB
     Indication: PLASMA CELL MYELOMA
     Route: 065
     Dates: start: 20180723, end: 20180723
  48. DEXART [Suspect]
     Active Substance: DEXAMETHASONE SODIUM PHOSPHATE
     Indication: PLASMA CELL MYELOMA
     Route: 065
     Dates: start: 20180209, end: 20180210
  49. DEXART [Suspect]
     Active Substance: DEXAMETHASONE SODIUM PHOSPHATE
     Indication: PLASMA CELL MYELOMA
     Route: 065
     Dates: start: 20180323, end: 20180324
  50. DEXART [Suspect]
     Active Substance: DEXAMETHASONE SODIUM PHOSPHATE
     Indication: PLASMA CELL MYELOMA
     Route: 065
     Dates: start: 20180330, end: 20180330
  51. DEXART [Suspect]
     Active Substance: DEXAMETHASONE SODIUM PHOSPHATE
     Indication: PLASMA CELL MYELOMA
     Route: 065
     Dates: start: 20180622, end: 20180623
  52. DEXART [Suspect]
     Active Substance: DEXAMETHASONE SODIUM PHOSPHATE
     Indication: PLASMA CELL MYELOMA
     Route: 065
     Dates: start: 20181213, end: 20181213
  53. DARZALEX [Suspect]
     Active Substance: DARATUMUMAB
     Indication: PLASMA CELL MYELOMA
     Route: 041
     Dates: start: 20180201, end: 20180201
  54. DARZALEX [Suspect]
     Active Substance: DARATUMUMAB
     Route: 041
     Dates: start: 20180406, end: 20180406
  55. DARZALEX [Suspect]
     Active Substance: DARATUMUMAB
     Route: 041
     Dates: start: 20180413, end: 20180413
  56. DARZALEX [Suspect]
     Active Substance: DARATUMUMAB
     Route: 041
     Dates: start: 20181213, end: 20181213
  57. DARZALEX [Suspect]
     Active Substance: DARATUMUMAB
     Route: 041
     Dates: start: 20190110, end: 20190110
  58. VELCADE [Suspect]
     Active Substance: BORTEZOMIB
     Indication: PLASMA CELL MYELOMA
     Route: 065
     Dates: start: 20180201, end: 20180201
  59. VELCADE [Suspect]
     Active Substance: BORTEZOMIB
     Indication: PLASMA CELL MYELOMA
     Route: 065
     Dates: start: 20180323, end: 20180323
  60. VELCADE [Suspect]
     Active Substance: BORTEZOMIB
     Indication: PLASMA CELL MYELOMA
     Route: 065
     Dates: start: 20180420, end: 20180420
  61. VELCADE [Suspect]
     Active Substance: BORTEZOMIB
     Indication: PLASMA CELL MYELOMA
     Route: 065
     Dates: start: 20180713, end: 20180713
  62. DEXART [Suspect]
     Active Substance: DEXAMETHASONE SODIUM PHOSPHATE
     Indication: PLASMA CELL MYELOMA
     Route: 065
     Dates: start: 20180226, end: 20180227
  63. DEXART [Suspect]
     Active Substance: DEXAMETHASONE SODIUM PHOSPHATE
     Indication: PLASMA CELL MYELOMA
     Route: 065
     Dates: start: 20180702, end: 20180703
  64. DEXART [Suspect]
     Active Substance: DEXAMETHASONE SODIUM PHOSPHATE
     Indication: PLASMA CELL MYELOMA
     Route: 065
     Dates: start: 20180713, end: 20180714
  65. DEXART [Suspect]
     Active Substance: DEXAMETHASONE SODIUM PHOSPHATE
     Indication: PLASMA CELL MYELOMA
     Route: 065
     Dates: start: 20180720, end: 20180721
  66. DEXART [Suspect]
     Active Substance: DEXAMETHASONE SODIUM PHOSPHATE
     Indication: PLASMA CELL MYELOMA
     Route: 065
     Dates: start: 20180810, end: 20180811
  67. DARZALEX [Suspect]
     Active Substance: DARATUMUMAB
     Route: 041
     Dates: start: 20180803, end: 20180803
  68. DARZALEX [Suspect]
     Active Substance: DARATUMUMAB
     Route: 041
     Dates: start: 20181018, end: 20181018
  69. DARZALEX [Suspect]
     Active Substance: DARATUMUMAB
     Route: 041
     Dates: start: 20181115, end: 20181115
  70. VELCADE [Suspect]
     Active Substance: BORTEZOMIB
     Indication: PLASMA CELL MYELOMA
     Route: 065
     Dates: start: 20180226, end: 20180226
  71. VELCADE [Suspect]
     Active Substance: BORTEZOMIB
     Indication: PLASMA CELL MYELOMA
     Route: 065
     Dates: start: 20180629, end: 20180629
  72. DEXART [Suspect]
     Active Substance: DEXAMETHASONE SODIUM PHOSPHATE
     Indication: PLASMA CELL MYELOMA
     Route: 065
     Dates: start: 20180212, end: 20180213
  73. DEXART [Suspect]
     Active Substance: DEXAMETHASONE SODIUM PHOSPHATE
     Indication: PLASMA CELL MYELOMA
     Route: 065
     Dates: start: 20180223, end: 20180224
  74. DEXART [Suspect]
     Active Substance: DEXAMETHASONE SODIUM PHOSPHATE
     Indication: PLASMA CELL MYELOMA
     Route: 065
     Dates: start: 20180302, end: 20180303
  75. DEXART [Suspect]
     Active Substance: DEXAMETHASONE SODIUM PHOSPHATE
     Indication: PLASMA CELL MYELOMA
     Route: 065
     Dates: start: 20180601, end: 20180602
  76. DEXART [Suspect]
     Active Substance: DEXAMETHASONE SODIUM PHOSPHATE
     Indication: PLASMA CELL MYELOMA
     Route: 065
     Dates: start: 20180611, end: 20180612
  77. DEXART [Suspect]
     Active Substance: DEXAMETHASONE SODIUM PHOSPHATE
     Indication: PLASMA CELL MYELOMA
     Route: 065
     Dates: start: 20180806, end: 20180807
  78. DEXART [Suspect]
     Active Substance: DEXAMETHASONE SODIUM PHOSPHATE
     Indication: PLASMA CELL MYELOMA
     Route: 065
     Dates: start: 20181018, end: 20181018
  79. DARZALEX [Suspect]
     Active Substance: DARATUMUMAB
     Route: 041
     Dates: start: 20180216, end: 20180216
  80. DARZALEX [Suspect]
     Active Substance: DARATUMUMAB
     Route: 041
     Dates: start: 20180223, end: 20180223
  81. DARZALEX [Suspect]
     Active Substance: DARATUMUMAB
     Route: 041
     Dates: start: 20180824, end: 20180824
  82. VELCADE [Suspect]
     Active Substance: BORTEZOMIB
     Indication: PLASMA CELL MYELOMA
     Route: 065
     Dates: start: 20180416, end: 20180416
  83. VELCADE [Suspect]
     Active Substance: BORTEZOMIB
     Indication: PLASMA CELL MYELOMA
     Route: 065
     Dates: start: 20180702, end: 20180702
  84. VELCADE [Suspect]
     Active Substance: BORTEZOMIB
     Indication: PLASMA CELL MYELOMA
     Route: 065
     Dates: start: 20180717, end: 20180717
  85. DEXART [Suspect]
     Active Substance: DEXAMETHASONE SODIUM PHOSPHATE
     Indication: PLASMA CELL MYELOMA
     Route: 065
     Dates: start: 20180216, end: 20180216
  86. DEXART [Suspect]
     Active Substance: DEXAMETHASONE SODIUM PHOSPHATE
     Indication: PLASMA CELL MYELOMA
     Route: 065
     Dates: start: 20180316, end: 20180316
  87. DEXART [Suspect]
     Active Substance: DEXAMETHASONE SODIUM PHOSPHATE
     Indication: PLASMA CELL MYELOMA
     Route: 065
     Dates: start: 20180723, end: 20180724
  88. DEXART [Suspect]
     Active Substance: DEXAMETHASONE SODIUM PHOSPHATE
     Indication: PLASMA CELL MYELOMA
     Route: 065
     Dates: start: 20180813, end: 20180814
  89. DEXART [Suspect]
     Active Substance: DEXAMETHASONE SODIUM PHOSPHATE
     Indication: PLASMA CELL MYELOMA
     Route: 065
     Dates: start: 20180920, end: 20180920
  90. DENOSINE [Concomitant]
     Indication: PNEUMONIA CYTOMEGALOVIRAL
     Route: 041
     Dates: start: 20180421

REACTIONS (7)
  - Platelet count decreased [Recovering/Resolving]
  - Epistaxis [Recovered/Resolved]
  - Peripheral motor neuropathy [Recovering/Resolving]
  - White blood cell count decreased [Recovering/Resolving]
  - Neutrophil count decreased [Recovering/Resolving]
  - Pneumonia cytomegaloviral [Recovered/Resolved]
  - Influenza [Recovered/Resolved]

NARRATIVE: CASE EVENT DATE: 20180212
